FAERS Safety Report 23140752 (Version 1)
Quarter: 2023Q4

REPORT INFORMATION
  Report Type: Spontaneous
  Country: US (occurrence: US)
  Receive Date: 20231103
  Receipt Date: 20231103
  Transmission Date: 20240109
  Serious: Yes (Other)
  Sender: FDA-Public Use
  Company Number: US-VIIV HEALTHCARE LIMITED-US2023147214

PATIENT

DRUGS (3)
  1. CABENUVA [Suspect]
     Active Substance: CABOTEGRAVIR\RILPIVIRINE
     Indication: HIV infection
     Dosage: UNK
     Dates: start: 20220101
  2. CABENUVA [Suspect]
     Active Substance: CABOTEGRAVIR\RILPIVIRINE
  3. CABENUVA [Suspect]
     Active Substance: CABOTEGRAVIR\RILPIVIRINE

REACTIONS (6)
  - Uterine haemorrhage [Not Recovered/Not Resolved]
  - Vaginal haemorrhage [Not Recovered/Not Resolved]
  - Condition aggravated [Not Recovered/Not Resolved]
  - Menstruation irregular [Unknown]
  - Heavy menstrual bleeding [Unknown]
  - Menstrual clots [Unknown]

NARRATIVE: CASE EVENT DATE: 20220501
